FAERS Safety Report 11939775 (Version 1)
Quarter: 2016Q1

REPORT INFORMATION
  Report Type: Report from Study
  Country: BR (occurrence: BR)
  Receive Date: 20160122
  Receipt Date: 20160122
  Transmission Date: 20160526
  Serious: Yes (Other)
  Sender: FDA-Public Use
  Company Number: BR-ABBVIE-16P-020-1543957-00

PATIENT
  Sex: Female
  Weight: 46 kg

DRUGS (1)
  1. SYNTHROID [Suspect]
     Active Substance: LEVOTHYROXINE SODIUM
     Indication: PRODUCT USED FOR UNKNOWN INDICATION
     Route: 048
     Dates: start: 1990

REACTIONS (5)
  - Kyphosis [Unknown]
  - Deafness [Not Recovered/Not Resolved]
  - Breast cancer [Recovered/Resolved]
  - Fall [Unknown]
  - Body height decreased [Unknown]

NARRATIVE: CASE EVENT DATE: 2010
